FAERS Safety Report 25489026 (Version 1)
Quarter: 2025Q2

REPORT INFORMATION
  Report Type: Spontaneous
  Country: CZ (occurrence: CZ)
  Receive Date: 20250627
  Receipt Date: 20250627
  Transmission Date: 20250716
  Serious: Yes (Other)
  Sender: BIOGEN
  Company Number: None

PATIENT
  Age: 24 Year
  Sex: Male

DRUGS (12)
  1. SKYCLARYS [Suspect]
     Active Substance: OMAVELOXOLONE
     Indication: Friedreich^s ataxia
     Dosage: 2-0-0
     Route: 050
     Dates: start: 202408, end: 202502
  2. DAPAGLIFLOZIN [Concomitant]
     Active Substance: DAPAGLIFLOZIN
     Indication: Product used for unknown indication
     Dosage: 0-1-0
     Route: 050
  3. Controloc 40MG [Concomitant]
     Indication: Product used for unknown indication
     Dosage: 1-0-1
     Route: 050
  4. POTASSIUM CHLORIDE [Concomitant]
     Active Substance: POTASSIUM CHLORIDE
     Indication: Product used for unknown indication
     Dosage: 1-0-0
     Route: 050
  5. PRADAXA [Concomitant]
     Active Substance: DABIGATRAN ETEXILATE MESYLATE
     Indication: Product used for unknown indication
     Dosage: 1-0-1
     Route: 050
  6. COLCHICINE [Concomitant]
     Active Substance: COLCHICINE
     Indication: Product used for unknown indication
     Dosage: 1-0-1
     Route: 050
  7. ENTRESTO [Concomitant]
     Active Substance: SACUBITRIL\VALSARTAN
     Indication: Product used for unknown indication
     Dosage: 1-0-1
     Route: 050
  8. Betaloc ZOK 25MG [Concomitant]
     Indication: Product used for unknown indication
     Dosage: 1-0-0
     Route: 050
  9. Cordarone 200MG [Concomitant]
     Indication: Product used for unknown indication
     Dosage: 1-0-0 (MONDAY TO FRIDAY)
     Route: 050
  10. Argofan 75 mg [Concomitant]
     Indication: Product used for unknown indication
     Dosage: 1-0-0
     Route: 050
  11. Sorbifer Durules [Concomitant]
     Indication: Product used for unknown indication
     Dosage: 1-0-0
     Route: 050
  12. Asentra 50MG [Concomitant]
     Indication: Product used for unknown indication
     Dosage: 2-0-0
     Route: 050

REACTIONS (3)
  - Condition aggravated [Not Recovered/Not Resolved]
  - Cardiac failure congestive [Not Recovered/Not Resolved]
  - Ascites [Not Recovered/Not Resolved]

NARRATIVE: CASE EVENT DATE: 20250226
